FAERS Safety Report 15197811 (Version 1)
Quarter: 2018Q3

REPORT INFORMATION
  Report Type: Spontaneous
  Country: US (occurrence: US)
  Receive Date: 20180725
  Receipt Date: 20180725
  Transmission Date: 20181010
  Serious: No
  Sender: FDA-Public Use
  Company Number: US-ABBVIE-17P-163-2110985-00

PATIENT
  Age: 59 Year
  Sex: Female

DRUGS (3)
  1. SYNTHROID [Suspect]
     Active Substance: LEVOTHYROXINE SODIUM
     Indication: PRODUCT USED FOR UNKNOWN INDICATION
     Route: 048
     Dates: start: 2000, end: 201707
  2. SYNTHROID [Suspect]
     Active Substance: LEVOTHYROXINE SODIUM
     Route: 048
  3. SYNTHROID [Suspect]
     Active Substance: LEVOTHYROXINE SODIUM
     Dosage: 75 MICROGRAM DAILY AND TAKE ADDITIONAL ONE?HALF TABLET ON SUNDAY
     Route: 048
     Dates: start: 20170716, end: 20170730

REACTIONS (11)
  - Hyperthyroidism [Not Recovered/Not Resolved]
  - Tinnitus [Recovered/Resolved]
  - Constipation [Not Recovered/Not Resolved]
  - Tinnitus [Not Recovered/Not Resolved]
  - Nausea [Not Recovered/Not Resolved]
  - Weight increased [Not Recovered/Not Resolved]
  - Headache [Not Recovered/Not Resolved]
  - Lethargy [Not Recovered/Not Resolved]
  - Ear infection [Unknown]
  - Crying [Not Recovered/Not Resolved]
  - Muscular weakness [Not Recovered/Not Resolved]

NARRATIVE: CASE EVENT DATE: 20170730
